FAERS Safety Report 10554779 (Version 1)
Quarter: 2014Q4

REPORT INFORMATION
  Report Type: Report from Study
  Country: US (occurrence: US)
  Receive Date: 20141030
  Receipt Date: 20141030
  Transmission Date: 20150529
  Serious: Yes (Other)
  Sender: FDA-Public Use
  Company Number: US-ACTELION-A-US2014-107166

PATIENT
  Age: 74 Year
  Sex: Female

DRUGS (4)
  1. ADCIRCA [Concomitant]
     Active Substance: TADALAFIL
  2. TRACLEER [Suspect]
     Active Substance: BOSENTAN\BOSENTAN MONOHYDRATE
     Indication: COR PULMONALE CHRONIC
     Dosage: UNK
     Route: 048
  3. OXYGEN. [Concomitant]
     Active Substance: OXYGEN
  4. VELETRI [Concomitant]
     Active Substance: EPOPROSTENOL
     Indication: COR PULMONALE CHRONIC
     Dosage: 20 NG/KG, PER MIN
     Route: 042

REACTIONS (1)
  - Carbon monoxide poisoning [Unknown]

NARRATIVE: CASE EVENT DATE: 20141003
